FAERS Safety Report 14786711 (Version 17)
Quarter: 2020Q1

REPORT INFORMATION
  Report Type: Report from Study
  Country: US (occurrence: US)
  Receive Date: 20180420
  Receipt Date: 20200215
  Transmission Date: 20200409
  Serious: Yes (Hospitalization)
  Sender: FDA-Public Use
  Company Number: US-ACTELION-A-US2018-170797

PATIENT
  Age: 2 Year
  Sex: Female
  Weight: 14.97 kg

DRUGS (27)
  1. IBUPROFEN. [Concomitant]
     Active Substance: IBUPROFEN
  2. SODIUM CHLORIDE. [Concomitant]
     Active Substance: SODIUM CHLORIDE
  3. REVATIO [Suspect]
     Active Substance: SILDENAFIL CITRATE
     Indication: PRODUCT USED FOR UNKNOWN INDICATION
     Dosage: 10 MG/ML, TID
     Route: 065
  4. BANOPHEN [Concomitant]
     Active Substance: DIPHENHYDRAMINE HYDROCHLORIDE
  5. MELATONIN [Concomitant]
     Active Substance: MELATONIN
  6. DESITIN [Concomitant]
     Active Substance: ZINC OXIDE
  7. TRACLEER [Suspect]
     Active Substance: BOSENTAN
     Indication: PULMONARY HYPERTENSION
     Dosage: 24 MG, BID BY MOUTH OR BY J-TUBE
     Route: 048
     Dates: start: 2018
  8. POLYETHYLENE GLYCOL [Concomitant]
     Active Substance: POLYETHYLENE GLYCOLS
  9. POLY-VI-SOL [Concomitant]
     Active Substance: VITAMINS
  10. PULMOZYME [Concomitant]
     Active Substance: DORNASE ALFA
  11. REVATIO [Suspect]
     Active Substance: SILDENAFIL CITRATE
     Dosage: 40 MG, TID
     Route: 065
  12. SPIRONOLACTONE. [Concomitant]
     Active Substance: SPIRONOLACTONE
     Dosage: 25 MG, UNK
  13. ONDANSETRON [Concomitant]
     Active Substance: ONDANSETRON
  14. LUBRI [Concomitant]
  15. TRACLEER [Suspect]
     Active Substance: BOSENTAN
     Dosage: 32 MG, BID BY MOUTH OR BY G-TUBE
     Route: 048
  16. CIPROFLOXACIN. [Concomitant]
     Active Substance: CIPROFLOXACIN
     Dosage: 250 MG, UNK
  17. DIURAL [Concomitant]
     Active Substance: FUROSEMIDE
     Dosage: 250/5 ML
  18. MULTIVITAMIN [Concomitant]
     Active Substance: VITAMINS
  19. BETHKIS [Concomitant]
     Active Substance: TOBRAMYCIN
  20. AQUAPHOR [Concomitant]
     Active Substance: PETROLATUM
  21. DESLORATADINE. [Concomitant]
     Active Substance: DESLORATADINE
  22. PEDIA-LAX STOOL SOFTENER [Concomitant]
  23. REMODULIN [Suspect]
     Active Substance: TREPROSTINIL
     Indication: PULMONARY HYPERTENSION
     Dosage: 82 NG/KG, PER MIN
     Route: 058
     Dates: start: 20180509
  24. BUDESONIDE. [Concomitant]
     Active Substance: BUDESONIDE
  25. BUMEX [Concomitant]
     Active Substance: BUMETANIDE
     Dosage: 0.5 MG, UNK
  26. TRIAMCINOLONE [Concomitant]
     Active Substance: TRIAMCINOLONE
  27. POTASSIUM CHLORIDE. [Concomitant]
     Active Substance: POTASSIUM CHLORIDE

REACTIONS (19)
  - Weight decreased [Unknown]
  - Catheter site pain [Unknown]
  - Hospitalisation [Unknown]
  - Blood urea increased [Unknown]
  - Diarrhoea [Unknown]
  - Respiratory distress [Unknown]
  - Oxygen consumption increased [Unknown]
  - Oedema [Recovering/Resolving]
  - Unevaluable event [Recovered/Resolved]
  - Oxygen saturation decreased [Not Recovered/Not Resolved]
  - Haemoglobin increased [Unknown]
  - Catheter site discharge [Unknown]
  - Vomiting [Unknown]
  - Bacterial infection [Unknown]
  - Fatigue [Unknown]
  - Heart rate decreased [Unknown]
  - Adverse drug reaction [Recovered/Resolved]
  - Heart rate increased [Unknown]
  - Catheter site erythema [Recovered/Resolved]

NARRATIVE: CASE EVENT DATE: 20180815
